FAERS Safety Report 4765295-3 (Version None)
Quarter: 2005Q3

REPORT INFORMATION
  Report Type: 
  Country: None (occurrence: None)
  Receive Date: 20050909
  Receipt Date: 20050202
  Transmission Date: 20060218
  Serious: Yes (Hospitalization)
  Sender: FDA-Public Use
  Company Number: FR-MERCK-0502FRA00024

PATIENT
  Age: 53 Year
  Sex: Female
  Weight: 73 kg

DRUGS (4)
  1. VIOXX [Suspect]
     Indication: OSTEOARTHRITIS
     Route: 048
  2. PAROXETINE [Suspect]
     Indication: DEPRESSION
     Route: 048
  3. DIACEREIN [Suspect]
     Indication: OSTEOARTHRITIS
     Route: 048
  4. ESTRADIOL [Suspect]
     Indication: POSTMENOPAUSE
     Route: 061

REACTIONS (3)
  - CAROTID ARTERY DISSECTION [None]
  - CEREBRAL INFARCTION [None]
  - CEREBROVASCULAR ACCIDENT [None]
